FAERS Safety Report 8218989-1 (Version None)
Quarter: 2012Q1

REPORT INFORMATION
  Report Type: 
  Country: None (occurrence: None)
  Receive Date: 20120319
  Receipt Date: 20120315
  Transmission Date: 20120608
  Serious: Yes (Hospitalization, Other)
  Sender: FDA-Public Use
  Company Number: US-MERCK-1112USA00010

PATIENT
  Age: 59 Year
  Sex: Female
  Weight: 59 kg

DRUGS (9)
  1. ALENDRONATE SODIUM [Suspect]
     Indication: OSTEOPENIA
     Route: 048
     Dates: start: 20080701, end: 20081001
  2. BONIVA [Suspect]
     Indication: OSTEOPENIA
     Route: 048
     Dates: start: 20090101, end: 20100101
  3. FOSAMAX [Suspect]
     Route: 048
     Dates: start: 20020801, end: 20030901
  4. FOSAMAX [Suspect]
     Route: 048
     Dates: start: 20020801, end: 20030901
  5. BONIVA [Suspect]
     Indication: OSTEOPOROSIS
     Route: 048
     Dates: start: 20090101, end: 20100101
  6. ALENDRONATE SODIUM [Suspect]
     Indication: OSTEOPOROSIS
     Route: 048
     Dates: start: 20080701, end: 20081001
  7. FOSAMAX [Suspect]
     Indication: OSTEOPOROSIS
     Route: 048
     Dates: start: 19980101, end: 20080501
  8. FOSAMAX [Suspect]
     Indication: OSTEOPENIA
     Route: 048
     Dates: start: 19980101, end: 20080501
  9. MULTI-VITAMINS [Concomitant]
     Route: 065
     Dates: start: 19990101

REACTIONS (23)
  - HYPERCHOLESTEROLAEMIA [None]
  - BLOOD PARATHYROID HORMONE DECREASED [None]
  - AFFECTIVE DISORDER [None]
  - HIATUS HERNIA [None]
  - CARPAL TUNNEL SYNDROME [None]
  - FALL [None]
  - BREAST DISORDER [None]
  - HYPERTONIC BLADDER [None]
  - UTERINE LEIOMYOMA [None]
  - HYPOTHYROIDISM [None]
  - LOW TURNOVER OSTEOPATHY [None]
  - SLEEP DISORDER [None]
  - NEPHROSCLEROSIS [None]
  - HYPERTENSION [None]
  - SPONDYLITIS [None]
  - FRACTURE NONUNION [None]
  - EXOSTOSIS [None]
  - DIVERTICULUM [None]
  - FEMUR FRACTURE [None]
  - RENAL FAILURE CHRONIC [None]
  - UTERINE DISORDER [None]
  - ARTHRALGIA [None]
  - HAEMORRHOIDS [None]
